FAERS Safety Report 6734619-X (Version None)
Quarter: 2010Q2

REPORT INFORMATION
  Report Type: 
  Country: None (occurrence: None)
  Receive Date: 20100520
  Receipt Date: 20100507
  Transmission Date: 20101027
  Serious: Yes (Other)
  Sender: FDA-Public Use
  Company Number: CO-GENENTECH-301882

PATIENT
  Sex: Female

DRUGS (1)
  1. XOLAIR [Suspect]
     Indication: ASTHMA
     Dosage: 300 MG, Q2W
     Route: 058
     Dates: start: 20090820

REACTIONS (6)
  - BACK PAIN [None]
  - CHILLS [None]
  - DYSURIA [None]
  - PARAESTHESIA [None]
  - PYREXIA [None]
  - VOMITING [None]
